FAERS Safety Report 7685323-5 (Version None)
Quarter: 2011Q3

REPORT INFORMATION
  Report Type: 
  Country: None (occurrence: None)
  Receive Date: 20110729
  Receipt Date: 20110715
  Transmission Date: 20111222
  Serious: Yes (Hospitalization)
  Sender: FDA-Public Use
  Company Number: AEDEU201100188

PATIENT
  Age: 78 Year
  Sex: Male

DRUGS (1)
  1. GAMUNEX [Suspect]
     Indication: CHRONIC INFLAMMATORY DEMYELINATING POLYRADICULONEUROPATHY
     Dosage: IV
     Route: 042
     Dates: start: 20110713, end: 20110714

REACTIONS (5)
  - PERIPHERAL COLDNESS [None]
  - WRONG TECHNIQUE IN DRUG USAGE PROCESS [None]
  - INFUSION SITE PAIN [None]
  - PULMONARY EMBOLISM [None]
  - DRUG ADMINISTRATION ERROR [None]
